FAERS Safety Report 8211496-1 (Version None)
Quarter: 2012Q1

REPORT INFORMATION
  Report Type: 
  Country: None (occurrence: None)
  Receive Date: 20120315
  Receipt Date: 20120312
  Transmission Date: 20120608
  Serious: Yes (Other)
  Sender: FDA-Public Use
  Company Number: US-PFIZER INC-2009162852

PATIENT
  Sex: Male
  Weight: 77.098 kg

DRUGS (8)
  1. LIPITOR [Suspect]
     Dosage: 80 MG, DAILY
  2. INDERAL [Concomitant]
     Indication: STENT PLACEMENT
     Dosage: 30 MG, DAILY
     Route: 048
  3. TOPROL-XL [Concomitant]
     Indication: CARDIAC DISORDER
     Dosage: 75 MG, DAILY
  4. LIPITOR [Suspect]
     Indication: BLOOD CHOLESTEROL INCREASED
     Dosage: 80 MG, DAILY
     Route: 048
     Dates: start: 20030301, end: 20080101
  5. ACETYLSALICYLIC ACID [Concomitant]
     Indication: CARDIAC DISORDER
     Dosage: 325 MG, DAILY
  6. LISINOPRIL [Concomitant]
     Indication: ATRIOVENTRICULAR BLOCK
     Dosage: 20 MG, DAILY
  7. VYTORIN [Suspect]
     Indication: BLOOD CHOLESTEROL INCREASED
     Dosage: UNK
     Route: 048
     Dates: start: 20050601, end: 20051201
  8. ZETIA [Concomitant]

REACTIONS (5)
  - HYPERTENSION [None]
  - BACK DISORDER [None]
  - ARTHROPATHY [None]
  - TOOTH INFECTION [None]
  - BLOOD CHOLESTEROL INCREASED [None]
